FAERS Safety Report 23549934 (Version 1)
Quarter: 2024Q1

REPORT INFORMATION
  Report Type: Spontaneous
  Country: US (occurrence: US)
  Receive Date: 20240221
  Receipt Date: 20240221
  Transmission Date: 20240410
  Serious: No
  Sender: FDA-Public Use
  Company Number: US-TAKEDA-2024TUS012429

PATIENT
  Sex: Male

DRUGS (1)
  1. MOTEGRITY [Suspect]
     Active Substance: PRUCALOPRIDE SUCCINATE
     Indication: Product used for unknown indication
     Dosage: UNK
     Route: 065

REACTIONS (8)
  - Sleep disorder [Unknown]
  - Middle ear effusion [Unknown]
  - Road traffic accident [Unknown]
  - Limb injury [Unknown]
  - Depression [Unknown]
  - Insurance issue [Unknown]
  - Inability to afford medication [Unknown]
  - Product use issue [Unknown]
